FAERS Safety Report 5797205-4 (Version None)
Quarter: 2008Q3

REPORT INFORMATION
  Report Type: 
  Country: None (occurrence: None)
  Receive Date: 20080701
  Receipt Date: 20080619
  Transmission Date: 20090109
  Serious: Yes (Other)
  Sender: FDA-Public Use
  Company Number: US-PFIZER INC-2008043254

PATIENT
  Sex: Male
  Weight: 75.3 kg

DRUGS (10)
  1. CHANTIX [Suspect]
     Indication: EX-TOBACCO USER
     Route: 048
     Dates: start: 20080301, end: 20080401
  2. DRUG, UNSPECIFIED [Suspect]
  3. NEURONTIN [Concomitant]
  4. HYDROCODONE [Concomitant]
  5. XANAX [Concomitant]
  6. TRAZODONE HCL [Concomitant]
  7. CITALOPRAM HYDROBROMIDE [Concomitant]
  8. CYCLOBENZAPRINE HCL [Concomitant]
  9. OTHER HYPNOTICS AND SEDATIVES [Concomitant]
  10. MELATONIN [Concomitant]

REACTIONS (10)
  - ASTHENIA [None]
  - FALL [None]
  - FEELING DRUNK [None]
  - LACERATION [None]
  - LOSS OF CONSCIOUSNESS [None]
  - MEMORY IMPAIRMENT [None]
  - MUSCULOSKELETAL STIFFNESS [None]
  - NEOPLASM MALIGNANT [None]
  - SOMNAMBULISM [None]
  - SUICIDAL IDEATION [None]
